FAERS Safety Report 9056902 (Version 2)
Quarter: 2014Q1

REPORT INFORMATION
  Report Type: Spontaneous
  Country: US (occurrence: US)
  Receive Date: 20130201
  Receipt Date: 20140204
  Transmission Date: 20141002
  Serious: No
  Sender: FDA-Public Use
  Company Number: US-GALDERMA-US12415560

PATIENT
  Age: 24 Year
  Sex: Female
  Weight: 53 kg

DRUGS (4)
  1. EPIDUO (ADAPALENE, BENZOYL PEROXIDE) GEL 0.1% / 2.5% [Suspect]
     Indication: ACNE
     Route: 061
     Dates: start: 20121022, end: 20121122
  2. L^OREAL GENTLE CLEANSER [Concomitant]
  3. CLINIQUE MOISTURIZER [Concomitant]
     Route: 061
  4. NEUTROGENA SUNSCREEN [Concomitant]
     Route: 061

REACTIONS (8)
  - Drug hypersensitivity [Recovering/Resolving]
  - Acne [Recovering/Resolving]
  - Acne [Recovering/Resolving]
  - Scar [Not Recovered/Not Resolved]
  - Swelling face [Recovering/Resolving]
  - Pain of skin [Recovering/Resolving]
  - Erythema [Not Recovered/Not Resolved]
  - Dry skin [Not Recovered/Not Resolved]
